FAERS Safety Report 11189968 (Version 3)
Quarter: 2015Q3

REPORT INFORMATION
  Report Type: Spontaneous
  Country: US (occurrence: US)
  Receive Date: 20150615
  Receipt Date: 20150724
  Transmission Date: 20151125
  Serious: No
  Sender: FDA-Public Use
  Company Number: US-PFIZER INC-2015195675

PATIENT
  Age: 82 Year
  Sex: Female

DRUGS (1)
  1. VIROPTIC [Suspect]
     Active Substance: TRIFLURIDINE
     Indication: HERPES OPHTHALMIC
     Dosage: 6 TO 9 DAYS A DAY TO START FOR 1 WK THEN LESS EACH WEEK
     Route: 047

REACTIONS (7)
  - Extra dose administered [Unknown]
  - Eye pain [Unknown]
  - Hypoaesthesia [Unknown]
  - Drug intolerance [Recovered/Resolved]
  - Incorrect drug administration duration [Unknown]
  - Product container issue [Unknown]
  - Circumstance or information capable of leading to medication error [Unknown]
